FAERS Safety Report 7733383-5 (Version None)
Quarter: 2011Q3

REPORT INFORMATION
  Report Type: 
  Country: None (occurrence: None)
  Receive Date: 20110907
  Receipt Date: 20110829
  Transmission Date: 20111222
  Serious: Yes (Other)
  Sender: FDA-Public Use
  Company Number: US-BAYER-2011-080795

PATIENT
  Sex: Female
  Weight: 48.98 kg

DRUGS (12)
  1. ALLEGRA [Concomitant]
  2. MULTI-VITAMINS [Concomitant]
  3. NOREL [Concomitant]
  4. YASMIN [Suspect]
     Dosage: UNK
     Dates: start: 20050101, end: 20080101
  5. ASCORBIC ACID [Concomitant]
  6. IBUPROFEN (ADVIL) [Concomitant]
  7. EXCEDRIN [ACETYLSALICYLIC ACID,CAFFEINE,PARACETAMOL,SALICYLAMIDE] [Concomitant]
  8. ZOCOR [Concomitant]
  9. ELMIRON [Concomitant]
  10. YAZ [Suspect]
     Dosage: UNK
     Dates: start: 20050101, end: 20080101
  11. TYLENOL-500 [Concomitant]
  12. HYDROCHLOROTHIAZIDE [Concomitant]

REACTIONS (2)
  - HORMONE LEVEL ABNORMAL [None]
  - CHOLELITHIASIS [None]
